FAERS Safety Report 10714109 (Version 1)
Quarter: 2015Q1

REPORT INFORMATION
  Report Type: Spontaneous
  Country: US (occurrence: US)
  Receive Date: 20150115
  Receipt Date: 20150115
  Transmission Date: 20150721
  Serious: No
  Sender: FDA-Public Use
  Company Number: US-BAYER-2015-006206

PATIENT
  Age: 20 Year
  Sex: Female
  Weight: 57.14 kg

DRUGS (1)
  1. MIDOL [Suspect]
     Active Substance: IBUPROFEN
     Indication: DYSMENORRHOEA
     Dosage: 1 DF, ONCE
     Route: 048
     Dates: start: 20141222, end: 20141222

REACTIONS (1)
  - Hypomenorrhoea [Recovered/Resolved]

NARRATIVE: CASE EVENT DATE: 20141222
